FAERS Safety Report 13727753 (Version 1)
Quarter: 2017Q3

REPORT INFORMATION
  Report Type: Spontaneous
  Country: TR (occurrence: TR)
  Receive Date: 20170707
  Receipt Date: 20170707
  Transmission Date: 20171127
  Serious: Yes (Hospitalization)
  Sender: FDA-Public Use
  Company Number: TR-SUN PHARMACEUTICAL INDUSTRIES LTD-2016R1-116403

PATIENT
  Age: 48 Year
  Sex: Female

DRUGS (1)
  1. PROPYLTHIOURACIL. [Suspect]
     Active Substance: PROPYLTHIOURACIL
     Indication: TOXIC NODULAR GOITRE
     Dosage: (SINCE LAST 18 YEARS)
     Route: 065

REACTIONS (7)
  - Febrile neutropenia [Recovered/Resolved]
  - Chills [Recovered/Resolved]
  - Mouth ulceration [Recovered/Resolved]
  - Agranulocytosis [Recovered/Resolved]
  - Vomiting [Recovered/Resolved]
  - Nausea [Recovered/Resolved]
  - Fatigue [Recovered/Resolved]
